FAERS Safety Report 25943346 (Version 1)
Quarter: 2025Q4

REPORT INFORMATION
  Report Type: Spontaneous
  Country: CN (occurrence: CN)
  Receive Date: 20251021
  Receipt Date: 20251021
  Transmission Date: 20260118
  Serious: Yes (Other)
  Sender: BRACCO
  Company Number: CN-BRACCO-2025CN07101

PATIENT
  Age: 45 Year
  Sex: Male

DRUGS (2)
  1. IOHEXOL [Suspect]
     Active Substance: IOHEXOL
     Indication: Angiocardiogram
     Dosage: 37 G, SINGLE
     Route: 042
     Dates: start: 20251009, end: 20251009
  2. IOPAMIDOL [Suspect]
     Active Substance: IOPAMIDOL
     Indication: Angiocardiogram
     Dosage: 37 G, SINGLE
     Route: 042
     Dates: start: 20251009, end: 20251009

REACTIONS (4)
  - Depressed level of consciousness [Recovered/Resolved]
  - Contrast encephalopathy [Recovered/Resolved]
  - Stress [Recovered/Resolved]
  - Amnesia [Recovered/Resolved]

NARRATIVE: CASE EVENT DATE: 20251009
